FAERS Safety Report 24917832 (Version 2)
Quarter: 2025Q1

REPORT INFORMATION
  Report Type: Report from Study
  Country: NI (occurrence: NI)
  Receive Date: 20250203
  Receipt Date: 20250211
  Transmission Date: 20250408
  Serious: Yes (Death)
  Sender: BAYER HEALTHCARE PHARMACEUTICALS INC.
  Company Number: NI-BAYER-2025A015808

PATIENT
  Sex: Male

DRUGS (3)
  1. STIVARGA [Suspect]
     Active Substance: REGORAFENIB MONOHYDRATE
     Indication: Colorectal cancer metastatic
     Dosage: 160 MG, QD(FOUR 40 MG AS A SINGLE DOSE)
     Dates: start: 202404
  2. STIVARGA [Suspect]
     Active Substance: REGORAFENIB MONOHYDRATE
     Indication: Colorectal cancer metastatic
     Dosage: 40 MG, BID(ONE IN MORNING AND ONE IN AFTERNOON)
     Dates: end: 202405
  3. INSULIN NOS [Concomitant]
     Active Substance: INSULIN NOS
     Indication: Diabetes mellitus
     Dates: start: 2019

REACTIONS (3)
  - Colon cancer [Fatal]
  - Metastases to liver [Fatal]
  - Metastases to lung [Fatal]
